FAERS Safety Report 4515416-2 (Version None)
Quarter: 2004Q4

REPORT INFORMATION
  Report Type: 
  Country: None (occurrence: None)
  Receive Date: 20041029
  Receipt Date: 20040901
  Transmission Date: 20050328
  Serious: Yes (Other)
  Sender: FDA-Public Use
  Company Number: 200416601US

PATIENT
  Age: 26 Year
  Sex: Female

DRUGS (4)
  1. KETEK [Suspect]
     Indication: SINUSITIS
     Dosage: 400 MG, BID PO
     Route: 048
     Dates: start: 20040812, end: 20040812
  2. PSEUDOEPHEDRINE HYDROCHLORIDE [Concomitant]
  3. FEXOFENADINE (ALLEGRA-D) [Concomitant]
  4. ZITHROMAX [Concomitant]

REACTIONS (3)
  - DIZZINESS [None]
  - NAUSEA [None]
  - VISION BLURRED [None]
